FAERS Safety Report 13257231 (Version 1)
Quarter: 2017Q1

REPORT INFORMATION
  Report Type: Spontaneous
  Country: US (occurrence: US)
  Receive Date: 20170221
  Receipt Date: 20170221
  Transmission Date: 20170428
  Serious: No
  Sender: FDA-Public Use
  Company Number: US-VALIDUS PHARMACEUTICALS LLC-US-2016VAL003011

PATIENT
  Age: 54 Year
  Sex: Female
  Weight: 111.1 kg

DRUGS (19)
  1. ZAROXOLYN [Concomitant]
     Active Substance: METOLAZONE
     Indication: CARDIAC FAILURE ACUTE
     Dosage: UNK
     Dates: start: 20161101, end: 20161101
  2. LANTUS [Concomitant]
     Active Substance: INSULIN GLARGINE
     Indication: TYPE 2 DIABETES MELLITUS
     Dosage: UNK
     Dates: start: 20161031, end: 20161103
  3. ASPIRIN                            /00002701/ [Concomitant]
     Active Substance: ASPIRIN
     Indication: CARDIAC FAILURE ACUTE
     Dosage: UNK
     Dates: start: 20161103, end: 20161103
  4. LOVENOX [Concomitant]
     Active Substance: ENOXAPARIN SODIUM
     Indication: PROPHYLAXIS
     Dosage: UNK
     Dates: start: 20161103, end: 20161103
  5. NITROBID                           /00003201/ [Concomitant]
     Active Substance: NITROGLYCERIN
     Indication: CARDIAC FAILURE ACUTE
     Dosage: UNK
     Dates: end: 20161031
  6. COZAAR [Concomitant]
     Active Substance: LOSARTAN POTASSIUM
     Indication: HYPERTENSION
     Dosage: UNK
     Dates: start: 20161031, end: 20161031
  7. PREDNISONE. [Concomitant]
     Active Substance: PREDNISONE
     Indication: ACUTE RESPIRATORY FAILURE
     Dosage: UNK
     Dates: start: 20161103, end: 20161103
  8. XELJANZ [Concomitant]
     Active Substance: TOFACITINIB CITRATE
     Indication: RHEUMATOID ARTHRITIS
     Dosage: 5 MG, BID
     Dates: start: 20150331, end: 20161031
  9. HUMALOG [Concomitant]
     Active Substance: INSULIN LISPRO
     Indication: TYPE 2 DIABETES MELLITUS
     Dosage: UNK
     Dates: start: 20161031, end: 20161103
  10. TESSALON [Concomitant]
     Active Substance: BENZONATATE
     Indication: BRONCHITIS BACTERIAL
     Dosage: UNK
     Dates: start: 20161102, end: 20161102
  11. NEURONTIN [Concomitant]
     Active Substance: GABAPENTIN
     Indication: NEUROPATHY PERIPHERAL
     Dosage: UNK
     Dates: start: 20161103, end: 20161103
  12. NORCO [Concomitant]
     Active Substance: ACETAMINOPHEN\HYDROCODONE BITARTRATE
     Indication: RHEUMATOID ARTHRITIS
     Dosage: UNK
     Dates: start: 20161031, end: 20161031
  13. CEPACOL                            /00104701/ [Concomitant]
     Indication: BRONCHITIS BACTERIAL
     Dosage: UNK
     Dates: start: 20161031, end: 20161031
  14. LASIX [Suspect]
     Active Substance: FUROSEMIDE
     Indication: CARDIAC FAILURE ACUTE
     Dosage: 40 MG, UNK
     Dates: start: 20161031, end: 20161103
  15. DUONEB [Concomitant]
     Active Substance: ALBUTEROL SULFATE\IPRATROPIUM BROMIDE
     Indication: BRONCHITIS BACTERIAL
     Dosage: UNK
     Dates: start: 20161031, end: 20161102
  16. COREG [Concomitant]
     Active Substance: CARVEDILOL
     Indication: HYPERTENSION
     Dosage: UNK
     Dates: start: 20161103, end: 20161103
  17. ROCEPHIN [Concomitant]
     Active Substance: CEFTRIAXONE SODIUM
     Indication: BRONCHITIS BACTERIAL
     Dosage: UNK
     Dates: start: 20161031, end: 20161031
  18. ZITHROMAX [Concomitant]
     Active Substance: AZITHROMYCIN DIHYDRATE
     Indication: BRONCHITIS BACTERIAL
     Dosage: UNK
     Dates: start: 20161102, end: 20161102
  19. JANUVIA [Concomitant]
     Active Substance: SITAGLIPTIN PHOSPHATE
     Indication: TYPE 2 DIABETES MELLITUS
     Dosage: UNK
     Dates: start: 20161103, end: 20161103

REACTIONS (1)
  - Drug ineffective [Unknown]

NARRATIVE: CASE EVENT DATE: 20161031
